FAERS Safety Report 9801758 (Version 2)
Quarter: 2014Q1

REPORT INFORMATION
  Report Type: Spontaneous
  Country: US (occurrence: US)
  Receive Date: 20140107
  Receipt Date: 20140127
  Transmission Date: 20141002
  Serious: Yes (Death)
  Sender: FDA-Public Use
  Company Number: US-GLAXOSMITHKLINE-A1055431A

PATIENT
  Sex: Male

DRUGS (2)
  1. VOTRIENT [Suspect]
     Indication: MALIGNANT MELANOMA
     Dosage: 200MG UNKNOWN
     Route: 065
     Dates: start: 20130712
  2. ZOLINZA [Suspect]
     Indication: MALIGNANT MELANOMA
     Dosage: 100MG UNKNOWN
     Route: 065

REACTIONS (2)
  - Death [Fatal]
  - Adverse drug reaction [Unknown]
